FAERS Safety Report 13212100 (Version 1)
Quarter: 2017Q1

REPORT INFORMATION
  Report Type: Spontaneous
  Country: SE (occurrence: SE)
  Receive Date: 20170210
  Receipt Date: 20170210
  Transmission Date: 20170428
  Serious: Yes (Other)
  Sender: FDA-Public Use
  Company Number: SE-JNJFOC-20170207209

PATIENT
  Age: 8 Decade
  Sex: Male

DRUGS (1)
  1. REMICADE [Suspect]
     Active Substance: INFLIXIMAB
     Indication: CROHN^S DISEASE
     Route: 042
     Dates: end: 20150313

REACTIONS (10)
  - Eye haemorrhage [Unknown]
  - Fall [Unknown]
  - Skin disorder [Unknown]
  - Asthenia [Unknown]
  - Blister [Unknown]
  - Pneumonia [Unknown]
  - Dizziness [Unknown]
  - Joint swelling [Unknown]
  - Arthralgia [Unknown]
  - Rhinorrhoea [Unknown]

NARRATIVE: CASE EVENT DATE: 2015
